FAERS Safety Report 25804256 (Version 1)
Quarter: 2025Q3

REPORT INFORMATION
  Report Type: Spontaneous
  Country: US (occurrence: US)
  Receive Date: 20250915
  Receipt Date: 20250915
  Transmission Date: 20251020
  Serious: No
  Sender: MERCK SHARP & DOHME LLC
  Company Number: US-009507513-2322297

PATIENT

DRUGS (2)
  1. KEYTRUDA [Suspect]
     Active Substance: PEMBROLIZUMAB
     Indication: Colorectal cancer
     Dosage: 200 MG EVERY 21 DAYS
     Route: 042
     Dates: start: 20250814, end: 20250814
  2. KEYTRUDA [Suspect]
     Active Substance: PEMBROLIZUMAB
     Indication: Colorectal cancer
     Dosage: 200 MG EVERY 21 DAYS
     Route: 042

REACTIONS (1)
  - Vascular access complication [Recovered/Resolved]

NARRATIVE: CASE EVENT DATE: 20250813
